FAERS Safety Report 24596352 (Version 1)
Quarter: 2024Q4

REPORT INFORMATION
  Report Type: Spontaneous
  Country: US (occurrence: US)
  Receive Date: 20241110
  Receipt Date: 20241110
  Transmission Date: 20250114
  Serious: No
  Sender: SANOFI AVENTIS
  Company Number: US-SA-2024SA307660

PATIENT
  Age: 47 Year
  Sex: Male
  Weight: 68.04 kg

DRUGS (2)
  1. SARCLISA [Suspect]
     Active Substance: ISATUXIMAB-IRFC
     Indication: Plasma cell myeloma
     Dosage: 672 MG, QOW
     Route: 042
  2. SARCLISA [Suspect]
     Active Substance: ISATUXIMAB-IRFC
     Dosage: 672 MG, QOW
     Route: 042

REACTIONS (1)
  - Fatigue [Not Recovered/Not Resolved]
